FAERS Safety Report 4466040-1 (Version None)
Quarter: 2004Q3

REPORT INFORMATION
  Report Type: 
  Country: None (occurrence: None)
  Receive Date: 20040930
  Receipt Date: 20040920
  Transmission Date: 20050211
  Serious: Yes (Hospitalization)
  Sender: FDA-Public Use
  Company Number: STA-AE-04-MTX-434

PATIENT
  Age: 64 Year
  Sex: Male

DRUGS (19)
  1. RHEUMATREX [Suspect]
     Indication: RHEUMATOID ARTHRITIS
     Dosage: 6 MG 1X PER 1 WK, ORAL
     Route: 048
     Dates: start: 20020507, end: 20020826
  2. METALCAPTASE (PENICILLAMINE, ) [Suspect]
     Indication: RHEUMATOID ARTHRITIS
     Dosage: 200 MG 1X PER 1 DAY, ORAL
     Route: 048
     Dates: start: 20030806
  3. RHEUMATREX [Suspect]
     Dosage: 8 MG 1X PER 1 WK, ORAL
     Route: 048
     Dates: start: 20020827, end: 20030128
  4. RHEUMATREX [Suspect]
     Dosage: 10 MG 1X PER 1 WK, ORAL
     Route: 048
     Dates: start: 20030129
  5. PREDNISOLONE [Suspect]
     Indication: RHEUMATOID ARTHRITIS
     Dosage: 15 MG 1X PER 1 DAY, ORAL
     Route: 048
     Dates: start: 19940101
  6. REMICADE [Suspect]
     Indication: RHEUMATOID ARTHRITIS
     Dosage: 3 MG/KG 1X PER 1 DAY, INTRAVENOUS
     Route: 042
     Dates: start: 20031028, end: 20031028
  7. REMICADE [Suspect]
     Dosage: 3 MG/KG 1X PER 1 DAY, INTRAVENOUS
     Route: 042
     Dates: start: 20031111, end: 20031111
  8. REMICADE [Suspect]
     Dosage: 3 MG/KG 1X PER 1 DAY, INTRAVENOUS
     Route: 042
     Dates: start: 20040129, end: 20040129
  9. VOLTAREN [Concomitant]
  10. FOLIC ACID [Concomitant]
  11. BAYASPIRINA (ACETYLSALICYLIC ACID) [Concomitant]
  12. PYDOXAL (PYRIDOXAL PHOSPHATE) [Concomitant]
  13. ALFAROL (ALFACALCIDOL) [Concomitant]
  14. FERROMIA (FERROUS CITRATE) [Concomitant]
  15. CALSLOT (MANIDIPINE HYDROCHLORIDE) [Concomitant]
  16. ASPARA-CA (ASPARTATE CALCIUM) [Concomitant]
  17. ALTAT (ROXATIDINE ACETATE HYDROCHLORIDE) [Concomitant]
  18. PURSENNID (SENNA LEAF) [Concomitant]
  19. ISONIAZID [Concomitant]

REACTIONS (1)
  - EPIDIDYMITIS [None]
